FAERS Safety Report 19805201 (Version 1)
Quarter: 2021Q3

REPORT INFORMATION
  Report Type: Report from Study
  Country: US (occurrence: US)
  Receive Date: 20210908
  Receipt Date: 20210908
  Transmission Date: 20211014
  Serious: Yes (Other)
  Sender: FDA-Public Use
  Company Number: US-SA-2021SA178305

PATIENT
  Age: 53 Year
  Sex: Female

DRUGS (4)
  1. SONATA [MELATONIN] [Concomitant]
     Indication: SLEEP DISORDER
  2. DUPILUMAB [Suspect]
     Active Substance: DUPILUMAB
     Indication: DERMATITIS ATOPIC
     Dosage: 600 MG, 1X (INITIAL LOADING DOSE)
     Route: 058
     Dates: start: 20210514, end: 20210514
  3. DUPILUMAB [Suspect]
     Active Substance: DUPILUMAB
     Dosage: 300 MG, QOW
     Route: 058
     Dates: start: 20210528
  4. VIMPAT [Concomitant]
     Active Substance: LACOSAMIDE
     Indication: SEIZURE

REACTIONS (6)
  - Peripheral swelling [Not Recovered/Not Resolved]
  - Seizure [Recovering/Resolving]
  - Joint swelling [Not Recovered/Not Resolved]
  - Oedema [Not Recovered/Not Resolved]
  - Condition aggravated [Not Recovered/Not Resolved]
  - Product dose omission in error [Unknown]

NARRATIVE: CASE EVENT DATE: 2021
